FAERS Safety Report 6348025-3 (Version None)
Quarter: 2009Q3

REPORT INFORMATION
  Report Type: 
  Country: None (occurrence: None)
  Receive Date: 20090908
  Receipt Date: 20090824
  Transmission Date: 20100115
  Serious: Yes (Other)
  Sender: FDA-Public Use
  Company Number: 2009-02697

PATIENT
  Age: 76 Year
  Sex: Female
  Weight: 63.5 kg

DRUGS (6)
  1. VELCADE [Suspect]
     Indication: MULTIPLE MYELOMA
     Dosage: INTRAVENOUS
     Route: 042
     Dates: start: 20090422
  2. BEVACIZUMAB(BEVACIZUMAB) [Suspect]
     Indication: MULTIPLE MYELOMA
     Dosage: INTRAVENOUS
     Route: 042
     Dates: start: 20090424, end: 20090424
  3. HYDROCHLOROTHIAZIDE [Concomitant]
  4. CLONIDINE [Concomitant]
  5. LABETALOL HCL [Concomitant]
  6. CHLORTHALIDONE [Concomitant]

REACTIONS (8)
  - DYSPHAGIA [None]
  - EYE SWELLING [None]
  - HYPERTENSION [None]
  - LIP SWELLING [None]
  - MALIGNANT HYPERTENSION [None]
  - OEDEMA PERIPHERAL [None]
  - RASH GENERALISED [None]
  - SWELLING FACE [None]
